FAERS Safety Report 9660947 (Version 1)
Quarter: 2013Q4

REPORT INFORMATION
  Report Type: Spontaneous
  Country: US (occurrence: US)
  Receive Date: 20131031
  Receipt Date: 20131031
  Transmission Date: 20140711
  Serious: Yes (Other)
  Sender: FDA-Public Use
  Company Number: US-PFIZER INC-2013310796

PATIENT
  Age: 84 Year
  Sex: Female
  Weight: 77.1 kg

DRUGS (10)
  1. LYRICA [Suspect]
     Indication: DIABETIC NEUROPATHY
     Dosage: 75 MG, SINGLE
     Route: 048
     Dates: start: 20131025, end: 20131025
  2. TRAMADOL [Concomitant]
     Dosage: UNK
  3. CYMBALTA [Concomitant]
     Dosage: UNK
  4. ATENOLOL [Concomitant]
     Dosage: UNK
  5. VITAMIN D [Concomitant]
     Dosage: 5000 UNK, UNK
  6. VITAMIN B 150 [Concomitant]
     Dosage: 150 UNK, UNK
  7. POTASSIUM [Concomitant]
     Dosage: UNK
  8. FUROSEMIDE [Concomitant]
     Dosage: UNK
  9. ALPRAZOLAM [Concomitant]
     Dosage: UNK
  10. CAMPHOR [Concomitant]
     Dosage: UNK

REACTIONS (4)
  - Hypoacusis [Unknown]
  - Dyskinesia [Unknown]
  - Tremor [Unknown]
  - Feeling abnormal [Unknown]
